FAERS Safety Report 8514782-0 (Version None)
Quarter: 2012Q3

REPORT INFORMATION
  Report Type: 
  Country: None (occurrence: None)
  Receive Date: 20120717
  Receipt Date: 20120712
  Transmission Date: 20120928
  Serious: Yes (Hospitalization)
  Sender: FDA-Public Use
  Company Number: IT-NAPPMUNDI-GBR-2012-0010787

PATIENT
  Age: 61 Year
  Sex: Male

DRUGS (7)
  1. NADROPARIN [Interacting]
     Indication: DEEP VEIN THROMBOSIS
     Dosage: 5700 UI, DAILY
     Route: 058
  2. GLYBURIDE AND METFORMIN HYDROCHLORIDE [Interacting]
     Indication: TYPE 2 DIABETES MELLITUS
     Dosage: 400MG /2.5MG, BID
     Route: 048
  3. LIPIDS NOS [Concomitant]
     Indication: DYSPHAGIA
  4. GLUCOSE [Concomitant]
     Indication: DYSPHAGIA
  5. AMINO ACIDS [Concomitant]
     Indication: DYSPHAGIA
  6. LEVOFLOXACIN [Interacting]
     Indication: PYREXIA
     Dosage: 500 MG, DAILY
     Route: 048
     Dates: start: 20091129
  7. HYDROMORPHONE HCL [Suspect]
     Indication: PAIN
     Dosage: 16 MG, DAILY
     Route: 048
     Dates: start: 20091129

REACTIONS (2)
  - HYPOGLYCAEMIC COMA [None]
  - DRUG INTERACTION [None]
